FAERS Safety Report 8080678-4 (Version None)
Quarter: 2012Q1

REPORT INFORMATION
  Report Type: 
  Country: None (occurrence: None)
  Receive Date: 20120130
  Receipt Date: 20120120
  Transmission Date: 20120608
  Serious: Yes (Hospitalization)
  Sender: FDA-Public Use
  Company Number: PHHY2011MX109455

PATIENT
  Sex: Female

DRUGS (8)
  1. VYTORIN [Concomitant]
     Indication: BLOOD TRIGLYCERIDES ABNORMAL
     Dosage: UNK
  2. IMURAN [Concomitant]
     Indication: PLATELET DISORDER
     Dosage: ONE TABLET DAILY
  3. ASPIRIN [Concomitant]
     Dosage: UNK
  4. GALVUS [Suspect]
     Indication: DIABETES MELLITUS
     Dosage: 2 DF, DAILY
     Dates: start: 20101001
  5. DIOVAN HCT [Suspect]
     Indication: HYPERTENSION
     Dosage: UNK
     Dates: start: 20111101
  6. FELODIPINE [Concomitant]
     Indication: HYPERTENSION
     Dosage: TWO TABLETS DAILY
  7. ZOMETA [Suspect]
     Indication: OSTEOPOROSIS
     Dosage: 4 MG VIAL
     Route: 042
     Dates: start: 20110601
  8. INSULIN [Concomitant]
     Indication: DIABETES MELLITUS
     Dosage: 20 U, IN THE MORNING

REACTIONS (4)
  - BONE PAIN [None]
  - DEHYDRATION [None]
  - OEDEMA PERIPHERAL [None]
  - MALNUTRITION [None]
